FAERS Safety Report 6559852-1 (Version None)
Quarter: 2010Q1

REPORT INFORMATION
  Report Type: 
  Country: None (occurrence: None)
  Receive Date: 20100129
  Receipt Date: 20090916
  Transmission Date: 20100710
  Serious: No
  Sender: FDA-Public Use
  Company Number: US-ABBOTT-09P-163-0597372-00

PATIENT
  Sex: Female
  Weight: 46.308 kg

DRUGS (4)
  1. HUMIRA [Suspect]
     Indication: CROHN'S DISEASE
     Dates: start: 20071101, end: 20090801
  2. HUMIRA [Suspect]
     Dosage: PRE-FILLED SYRINGE
     Dates: start: 20090801
  3. PROTONIX [Concomitant]
     Indication: GASTROOESOPHAGEAL REFLUX DISEASE
  4. IRON [Concomitant]
     Indication: ANAEMIA

REACTIONS (5)
  - INJECTION SITE HAEMATOMA [None]
  - NASAL CONGESTION [None]
  - NASAL ULCER [None]
  - SKIN FISSURES [None]
  - WOUND [None]
